FAERS Safety Report 12381953 (Version 1)
Quarter: 2016Q2

REPORT INFORMATION
  Report Type: Spontaneous
  Country: JP (occurrence: JP)
  Receive Date: 20160518
  Receipt Date: 20160518
  Transmission Date: 20160815
  Serious: Yes (Hospitalization)
  Sender: FDA-Public Use
  Company Number: PHJP2016JP011797

PATIENT
  Age: 72 Year
  Sex: Female
  Weight: 48 kg

DRUGS (12)
  1. FP-OD [Interacting]
     Active Substance: SELEGILINE HYDROCHLORIDE
     Dosage: 7.5MG, (2.5MG IN MORNING AND AT NOON TO 5MG IN MORNING AND 2.5MG AT NOON)
     Route: 048
     Dates: start: 20160407, end: 20160417
  2. MIRAPEX [Concomitant]
     Active Substance: PRAMIPEXOLE DIHYDROCHLORIDE
     Dosage: 1.125MG, (0.75MG IN MORNING AND 0.375MG AT NOON)
     Route: 048
     Dates: start: 20160425
  3. FP-OD [Interacting]
     Active Substance: SELEGILINE HYDROCHLORIDE
     Indication: PRODUCT USED FOR UNKNOWN INDICATION
     Dosage: 2.5 MG, BID
     Route: 048
     Dates: end: 20160406
  4. MIRAPEX [Concomitant]
     Active Substance: PRAMIPEXOLE DIHYDROCHLORIDE
     Dosage: 0.75 MG, QD
     Route: 048
     Dates: start: 20160415, end: 20160424
  5. PICOSULFATE [Concomitant]
     Active Substance: SODIUM PICOSULFATE
     Indication: PRODUCT USED FOR UNKNOWN INDICATION
     Dosage: UNK
     Route: 048
  6. MENESIT [Concomitant]
     Active Substance: CARBIDOPA\LEVODOPA
     Dosage: 1DF, UNK
     Route: 048
     Dates: start: 20160411
  7. FP-OD [Interacting]
     Active Substance: SELEGILINE HYDROCHLORIDE
     Dosage: 5MG, BID
     Route: 048
     Dates: start: 20160418
  8. MIRAPEX [Concomitant]
     Active Substance: PRAMIPEXOLE DIHYDROCHLORIDE
     Dosage: 1.5 MG, QD
     Route: 048
     Dates: start: 20160414, end: 20160414
  9. MENESIT [Concomitant]
     Active Substance: CARBIDOPA\LEVODOPA
     Indication: PRODUCT USED FOR UNKNOWN INDICATION
     Dosage: 2DF, QD
     Route: 048
     Dates: end: 20160410
  10. COMTAN [Suspect]
     Active Substance: ENTACAPONE
     Indication: PARKINSON^S DISEASE
     Dosage: 100 MG, BID
     Route: 048
     Dates: start: 20160421, end: 20160423
  11. MIRAPEX [Concomitant]
     Active Substance: PRAMIPEXOLE DIHYDROCHLORIDE
     Indication: PRODUCT USED FOR UNKNOWN INDICATION
     Dosage: 0.75 MG, QD
     Route: 048
     Dates: end: 20160413
  12. LOXONIN [Concomitant]
     Active Substance: LOXOPROFEN SODIUM
     Indication: PRODUCT USED FOR UNKNOWN INDICATION
     Dosage: UNK
     Route: 065

REACTIONS (2)
  - Blood pressure increased [Recovering/Resolving]
  - Drug interaction [Unknown]

NARRATIVE: CASE EVENT DATE: 20160422
